FAERS Safety Report 15831871 (Version 3)
Quarter: 2019Q1

REPORT INFORMATION
  Report Type: Spontaneous
  Country: JP (occurrence: JP)
  Receive Date: 20190116
  Receipt Date: 20190306
  Transmission Date: 20190417
  Serious: Yes (Death, Hospitalization, Other)
  Sender: FDA-Public Use
  Company Number: PHJP2019JP000667

PATIENT
  Sex: Female

DRUGS (1)
  1. AFINITOR [Suspect]
     Active Substance: EVEROLIMUS
     Indication: BREAST CANCER
     Dosage: 5 MG, QD
     Route: 048
     Dates: start: 20181220

REACTIONS (9)
  - Breast cancer [Fatal]
  - Peritonitis [Fatal]
  - White blood cell count decreased [Unknown]
  - Ascites [Unknown]
  - Hypovolaemic shock [Fatal]
  - Vomiting [Fatal]
  - Diarrhoea [Fatal]
  - Malignant neoplasm progression [Fatal]
  - Platelet count decreased [Unknown]

NARRATIVE: CASE EVENT DATE: 201812
